FAERS Safety Report 9009276 (Version 3)
Quarter: 2013Q1

REPORT INFORMATION
  Report Type: Spontaneous
  Country: JP (occurrence: JP)
  Receive Date: 20130111
  Receipt Date: 20130219
  Transmission Date: 20140127
  Serious: Yes (Hospitalization, Disabling)
  Sender: FDA-Public Use
  Company Number: JP-GLAXOSMITHKLINE-B0857642A

PATIENT
  Age: 76 Year
  Sex: Female

DRUGS (8)
  1. ZOVIRAX [Suspect]
     Indication: HERPES ZOSTER
     Dosage: 250MG THREE TIMES PER DAY
     Route: 042
     Dates: start: 20130105, end: 20130107
  2. ZOVIRAX [Suspect]
     Indication: HERPES ZOSTER
     Dosage: 250MG PER DAY
     Route: 042
     Dates: start: 20130108, end: 20130111
  3. VALTREX [Suspect]
     Indication: HERPES ZOSTER
     Dosage: 1000MG THREE TIMES PER DAY
     Route: 048
     Dates: start: 20130104, end: 20130104
  4. CALONAL [Concomitant]
     Dosage: 400MG THREE TIMES PER DAY
     Route: 048
     Dates: start: 20130105, end: 20130107
  5. METHYCOBAL [Concomitant]
     Dosage: 500MCG THREE TIMES PER DAY
     Route: 048
     Dates: start: 20130105, end: 20130107
  6. TAKEPRON [Concomitant]
     Dosage: 15MG PER DAY
     Route: 065
  7. BAYASPIRIN [Concomitant]
     Dosage: 100MG PER DAY
     Route: 048
  8. ARTIST [Concomitant]
     Dosage: 10MG PER DAY
     Route: 048

REACTIONS (2)
  - Renal impairment [Recovering/Resolving]
  - Renal impairment [Unknown]
